FAERS Safety Report 16657716 (Version 4)
Quarter: 2020Q3

REPORT INFORMATION
  Report Type: Report from Study
  Country: US (occurrence: US)
  Receive Date: 20190801
  Receipt Date: 20200910
  Transmission Date: 20201102
  Serious: No
  Sender: FDA-Public Use
  Company Number: PHEH2019US031592

PATIENT
  Age: 23 Year
  Sex: Female

DRUGS (1)
  1. COSENTYX [Suspect]
     Active Substance: SECUKINUMAB
     Indication: ANKYLOSING SPONDYLITIS
     Dosage: UNK
     Route: 065

REACTIONS (3)
  - Injection site bruising [Unknown]
  - Nasopharyngitis [Unknown]
  - Labyrinthitis [Unknown]

NARRATIVE: CASE EVENT DATE: 20190726
